FAERS Safety Report 8839737 (Version 1)
Quarter: 2012Q4

REPORT INFORMATION
  Report Type: Spontaneous
  Country: IT (occurrence: None)
  Receive Date: 20121011
  Receipt Date: 20121011
  Transmission Date: 20130627
  Serious: Yes (Other)
  Sender: FDA-Public Use
  Company Number: B0836126A

PATIENT
  Age: 1 Month
  Sex: Female

DRUGS (3)
  1. INNOPRAN XL [Suspect]
     Indication: HEMANGIOMA
     Dosage: 2 mg/kg / Per day / Oral
     Route: 048
  2. DOMPERIDONE [Concomitant]
  3. RANITIDINE HYDROCHLORIDE [Concomitant]

REACTIONS (1)
  - Tumour lysis syndrome [None]
